FAERS Safety Report 4283952-2 (Version None)
Quarter: 2004Q1

REPORT INFORMATION
  Report Type: 
  Country: None (occurrence: None)
  Receive Date: 20040202
  Receipt Date: 20040122
  Transmission Date: 20041129
  Serious: Yes (Hospitalization)
  Sender: FDA-Public Use
  Company Number: WAES 0401USA01721

PATIENT
  Age: 45 Year
  Sex: Male

DRUGS (4)
  1. EMEND [Suspect]
     Indication: PROPHYLAXIS OF NAUSEA AND VOMITING
     Route: 048
  2. FLUOROURACIL [Concomitant]
     Indication: COLON CANCER
  3. LEUCOVORIN CALCIUM [Concomitant]
     Indication: COLON CANCER
  4. OXALIPLATIN [Concomitant]
     Indication: COLON CANCER

REACTIONS (3)
  - MOVEMENT DISORDER [None]
  - PARALYSIS [None]
  - SWOLLEN TONGUE [None]
